FAERS Safety Report 6567905-7 (Version None)
Quarter: 2010Q1

REPORT INFORMATION
  Report Type: 
  Country: None (occurrence: None)
  Receive Date: 20100203
  Receipt Date: 20100129
  Transmission Date: 20100710
  Serious: Yes (Life-Threatening)
  Sender: FDA-Public Use
  Company Number: PHHY2009JP56371

PATIENT
  Sex: Female
  Weight: 58 kg

DRUGS (17)
  1. DIOVAN [Suspect]
     Dosage: 80 MG, BID
     Route: 048
     Dates: start: 20071113, end: 20090609
  2. LOCHOL [Concomitant]
     Dosage: 20 MG, UNK
     Route: 048
     Dates: start: 20090424, end: 20090609
  3. SIGMART [Concomitant]
     Dosage: 15 MG, UNK
     Route: 048
     Dates: start: 20071113, end: 20090609
  4. SIGMART [Concomitant]
     Dosage: 15 MG, UNK
     Route: 048
     Dates: start: 20090420, end: 20090609
  5. CONIEL [Concomitant]
     Indication: HYPERTENSION
     Dosage: 8 MG, UNK
     Route: 048
     Dates: start: 20090512, end: 20090609
  6. LASIX [Concomitant]
     Indication: HYPERTENSION
     Dosage: UNK
     Route: 048
     Dates: start: 20071113, end: 20090609
  7. CARDENALIN [Concomitant]
     Indication: HYPERTENSION
     Dosage: 4 MG, UNK
     Route: 048
     Dates: start: 20071113
  8. CARDENALIN [Concomitant]
     Dosage: 8 MG, UNK
     Route: 048
  9. CARDENALIN [Concomitant]
     Dosage: 2 MG, UNK
     Route: 048
  10. CARDENALIN [Concomitant]
     Dosage: 4 MG, UNK
     Route: 048
     Dates: end: 20090512
  11. NORVASC [Concomitant]
     Indication: HYPERTENSION
     Dosage: 10 MG, UNK
     Route: 048
     Dates: start: 20071115, end: 20090609
  12. EPLERENONE [Concomitant]
     Indication: HYPERTENSION
     Dosage: 25 MG, UNK
     Route: 048
     Dates: start: 20090108, end: 20090609
  13. LIPITOR [Concomitant]
     Dosage: 5 MG, UNK
     Route: 048
     Dates: start: 20071113, end: 20080417
  14. MUCOSTA [Concomitant]
     Dosage: 30 MG, UNK
     Route: 048
     Dates: start: 20071113, end: 20080417
  15. PANALDINE [Concomitant]
     Dosage: 200 MG, UNK
     Route: 048
     Dates: start: 20071113
  16. ASPIRIN [Concomitant]
     Dosage: 100 MG, UNK
     Route: 048
     Dates: start: 20071113
  17. NITROGLYCERIN [Concomitant]
     Dosage: 1 DF
     Route: 062
     Dates: start: 20090420, end: 20090609

REACTIONS (2)
  - ANGINA PECTORIS [None]
  - CHEST PAIN [None]
